FAERS Safety Report 12174031 (Version 4)
Quarter: 2016Q3

REPORT INFORMATION
  Report Type: Report from Study
  Country: US (occurrence: US)
  Receive Date: 20160314
  Receipt Date: 20160701
  Transmission Date: 20161109
  Serious: Yes (Death, Other)
  Sender: FDA-Public Use
  Company Number: US-AMGEN-USASL2016030783

PATIENT
  Age: 78 Year
  Sex: Female

DRUGS (2)
  1. PREDNISONE. [Concomitant]
     Active Substance: PREDNISONE
     Dosage: 70 MG, UNK
  2. ENBREL [Suspect]
     Active Substance: ETANERCEPT
     Indication: RHEUMATOID ARTHRITIS
     Dosage: 50 MG, UNK
     Route: 065
     Dates: start: 20040101

REACTIONS (11)
  - Deafness [Unknown]
  - Blindness [Unknown]
  - Diabetes mellitus [Unknown]
  - Arthritis [Unknown]
  - Malaise [Unknown]
  - Pneumonia [Fatal]
  - Rheumatoid lung [Fatal]
  - Mobility decreased [Unknown]
  - Chronic obstructive pulmonary disease [Fatal]
  - Activities of daily living impaired [Unknown]
  - Pain [Unknown]
